FAERS Safety Report 6516713-1 (Version None)
Quarter: 2009Q4

REPORT INFORMATION
  Report Type: 
  Country: None (occurrence: None)
  Receive Date: 20091223
  Receipt Date: 20090409
  Transmission Date: 20100525
  Serious: No
  Sender: FDA-Public Use
  Company Number: A0779015A

PATIENT
  Sex: Male

DRUGS (1)
  1. RHYTHMOL [Suspect]
     Indication: DRUG USE FOR UNKNOWN INDICATION
     Dates: start: 20090122

REACTIONS (1)
  - PROSTATIC SPECIFIC ANTIGEN INCREASED [None]
